FAERS Safety Report 4492399-5 (Version None)
Quarter: 2004Q4

REPORT INFORMATION
  Report Type: 
  Country: None (occurrence: None)
  Receive Date: 20041101
  Receipt Date: 20041101
  Transmission Date: 20050328
  Serious: Yes (Death)
  Sender: FDA-Public Use
  Company Number: None

PATIENT
  Age: 28 Year
  Sex: Male
  Weight: 107.0489 kg

DRUGS (2)
  1. CLOZAPINE [Suspect]
     Indication: SCHIZOPHRENIA
     Dosage: 100 MG PO QID
     Route: 048
     Dates: start: 20040902, end: 20040929
  2. IBUPROFEN [Suspect]
     Dosage: 60 MG PO Q6H
     Route: 048
     Dates: start: 20040915, end: 20040929

REACTIONS (3)
  - CARDIOMEGALY [None]
  - DEEP VEIN THROMBOSIS [None]
  - PULMONARY EMBOLISM [None]
